FAERS Safety Report 8086544-2 (Version None)
Quarter: 2012Q1

REPORT INFORMATION
  Report Type: 
  Country: None (occurrence: None)
  Receive Date: 20120128
  Receipt Date: 20110408
  Transmission Date: 20120608
  Serious: No
  Sender: FDA-Public Use
  Company Number: US-ABBOTT-11P-163-0719310-00

PATIENT
  Sex: Female
  Weight: 54.48 kg

DRUGS (3)
  1. HUMIRA [Suspect]
     Indication: RHEUMATOID ARTHRITIS
     Route: 058
     Dates: start: 20100901, end: 20110401
  2. HUMIRA [Suspect]
     Route: 058
     Dates: start: 20110401
  3. METHOTREXATE [Concomitant]
     Indication: RHEUMATOID ARTHRITIS
     Route: 048

REACTIONS (4)
  - PYREXIA [None]
  - RHEUMATOID ARTHRITIS [None]
  - DRUG DOSE OMISSION [None]
  - COUGH [None]
